FAERS Safety Report 19890569 (Version 1)
Quarter: 2021Q3

REPORT INFORMATION
  Report Type: Spontaneous
  Country: TN (occurrence: TN)
  Receive Date: 20210927
  Receipt Date: 20210927
  Transmission Date: 20211014
  Serious: Yes (Hospitalization, Other)
  Sender: FDA-Public Use
  Company Number: TN-FRESENIUS KABI-FK202110325

PATIENT
  Age: 50 Year
  Sex: Male

DRUGS (3)
  1. TERBUTALINE INJECTION (MANUFACTURER UNKNOWN) [Suspect]
     Active Substance: TERBUTALINE SULFATE
     Indication: ASTHMA
     Dosage: STANDARD DOSE
     Route: 055
     Dates: start: 201604
  2. TERBUTALINE INJECTION (MANUFACTURER UNKNOWN) [Suspect]
     Active Substance: TERBUTALINE SULFATE
     Dosage: WITH 0.9 PERCENT SALINE SOLUTION (5MG/UNIT)
     Route: 055
     Dates: end: 201704
  3. SALBUTAMOL [Suspect]
     Active Substance: ALBUTEROL
     Indication: ASTHMA
     Route: 055
     Dates: start: 201708

REACTIONS (2)
  - Respiratory failure [Recovered/Resolved]
  - Bronchospasm paradoxical [Recovered/Resolved]
